FAERS Safety Report 9782320 (Version 3)
Quarter: 2013Q4

REPORT INFORMATION
  Report Type: Report from Study
  Country: CA (occurrence: CA)
  Receive Date: 20131226
  Receipt Date: 20131230
  Transmission Date: 20140711
  Serious: Yes (Other)
  Sender: FDA-Public Use
  Company Number: CA-JNJFOC-20131110503

PATIENT
  Sex: Male
  Weight: 54.43 kg

DRUGS (1)
  1. SIMPONI [Suspect]
     Indication: ANKYLOSING SPONDYLITIS
     Route: 058
     Dates: start: 20130811, end: 20131121

REACTIONS (2)
  - Hypoaesthesia [Unknown]
  - Muscle twitching [Unknown]
